FAERS Safety Report 25799714 (Version 1)
Quarter: 2025Q3

REPORT INFORMATION
  Report Type: Spontaneous
  Country: US (occurrence: US)
  Receive Date: 20250914
  Receipt Date: 20250914
  Transmission Date: 20251021
  Serious: No
  Sender: ELI LILLY AND COMPANY
  Company Number: US-ELI_LILLY_AND_COMPANY-US202509010642

PATIENT
  Sex: Female

DRUGS (4)
  1. MOUNJARO [Suspect]
     Active Substance: TIRZEPATIDE
     Indication: Blood glucose abnormal
     Route: 065
     Dates: start: 202508
  2. MOUNJARO [Suspect]
     Active Substance: TIRZEPATIDE
     Indication: Blood glucose abnormal
     Route: 065
     Dates: start: 202508
  3. MOUNJARO [Suspect]
     Active Substance: TIRZEPATIDE
     Indication: Blood glucose abnormal
     Route: 065
     Dates: start: 202508
  4. MOUNJARO [Suspect]
     Active Substance: TIRZEPATIDE
     Indication: Blood glucose abnormal
     Route: 065
     Dates: start: 202508

REACTIONS (1)
  - Sinusitis [Unknown]
